FAERS Safety Report 21004883 (Version 3)
Quarter: 2023Q1

REPORT INFORMATION
  Report Type: Report from Study
  Country: CA (occurrence: CA)
  Receive Date: 20220624
  Receipt Date: 20230125
  Transmission Date: 20230418
  Serious: Yes (Other)
  Sender: FDA-Public Use
  Company Number: CA-NOVARTISPH-NVSC2022CA108510

PATIENT
  Age: 56 Year
  Sex: Female

DRUGS (2)
  1. COSENTYX [Suspect]
     Active Substance: SECUKINUMAB
     Indication: Psoriatic arthropathy
     Dosage: 150 MG, QMO
     Route: 058
     Dates: start: 20220319
  2. COSENTYX [Suspect]
     Active Substance: SECUKINUMAB
     Dosage: 300 MG, QMO
     Route: 058
     Dates: end: 20230110

REACTIONS (19)
  - Seronegative arthritis [Unknown]
  - Bone marrow oedema [Unknown]
  - Bone erosion [Unknown]
  - Periarthritis calcarea [Unknown]
  - Back pain [Unknown]
  - Arthralgia [Unknown]
  - Fall [Unknown]
  - Feeling abnormal [Unknown]
  - Osteoarthritis [Unknown]
  - Chondropathy [Unknown]
  - Bone cyst [Unknown]
  - Tendon disorder [Unknown]
  - Enthesophyte [Unknown]
  - Tenosynovitis [Unknown]
  - Arthritis [Unknown]
  - Joint swelling [Unknown]
  - Pain in extremity [Unknown]
  - Condition aggravated [Unknown]
  - Therapeutic product effect incomplete [Unknown]

NARRATIVE: CASE EVENT DATE: 20220614
